FAERS Safety Report 17618303 (Version 1)
Quarter: 2020Q2

REPORT INFORMATION
  Report Type: Spontaneous
  Country: JP (occurrence: JP)
  Receive Date: 20200402
  Receipt Date: 20200402
  Transmission Date: 20200713
  Serious: Yes (Other)
  Sender: FDA-Public Use
  Company Number: NVSC2020JP090172

PATIENT
  Age: 64 Year
  Sex: Female

DRUGS (4)
  1. 5-FLUOROURACIL [Suspect]
     Active Substance: FLUOROURACIL
     Indication: COLORECTAL CANCER METASTATIC
     Dosage: UNK  (3 COURSES)
     Route: 065
  2. IRINOTECAN [Suspect]
     Active Substance: IRINOTECAN
     Indication: COLORECTAL CANCER METASTATIC
     Dosage: UNK  (3 COURSES)
     Route: 065
  3. AFLIBERCEPT [Suspect]
     Active Substance: AFLIBERCEPT
     Indication: COLORECTAL CANCER METASTATIC
     Dosage: UNK (3 COURSES)
     Route: 065
  4. CALCIUM FOLINATE [Suspect]
     Active Substance: LEUCOVORIN CALCIUM
     Indication: COLORECTAL CANCER METASTATIC
     Dosage: UNK (3 COURSES)
     Route: 065

REACTIONS (3)
  - Malignant neoplasm progression [Unknown]
  - Product use in unapproved indication [Unknown]
  - Colorectal cancer metastatic [Unknown]
